FAERS Safety Report 14734200 (Version 1)
Quarter: 2018Q2

REPORT INFORMATION
  Report Type: Spontaneous
  Country: IT (occurrence: IT)
  Receive Date: 20180409
  Receipt Date: 20180409
  Transmission Date: 20180711
  Serious: Yes (Other)
  Sender: FDA-Public Use
  Company Number: IT-TEVA-2018-IT-877846

PATIENT
  Age: 80 Year
  Sex: Male

DRUGS (6)
  1. CORDARONE [Concomitant]
     Active Substance: AMIODARONE HYDROCHLORIDE
  2. LASIX [Concomitant]
     Active Substance: FUROSEMIDE
  3. ZOLPIDEM [Suspect]
     Active Substance: ZOLPIDEM\ZOLPIDEM TARTRATE
     Indication: PRODUCT USED FOR UNKNOWN INDICATION
     Route: 048
  4. ATORVASTATIN [Concomitant]
     Active Substance: ATORVASTATIN
  5. COUMADIN [Concomitant]
     Active Substance: WARFARIN SODIUM
  6. TRIATEC (RAMIPRIL) [Concomitant]
     Active Substance: RAMIPRIL

REACTIONS (2)
  - Sopor [Recovering/Resolving]
  - Presyncope [Recovering/Resolving]
